FAERS Safety Report 19553924 (Version 4)
Quarter: 2021Q4

REPORT INFORMATION
  Report Type: Report from Study
  Country: US (occurrence: US)
  Receive Date: 20210715
  Receipt Date: 20211105
  Transmission Date: 20220303
  Serious: Yes (Death, Other)
  Sender: FDA-Public Use
  Company Number: US-GLAXOSMITHKLINE-US2021AMR058734

PATIENT
  Age: 58 Year
  Sex: Female

DRUGS (1)
  1. BELANTAMAB MAFODOTIN [Suspect]
     Active Substance: BELANTAMAB MAFODOTIN
     Indication: Product used for unknown indication
     Dosage: UNK
     Dates: start: 20210211

REACTIONS (6)
  - Death [Fatal]
  - Keratopathy [Unknown]
  - Visual acuity reduced [Unknown]
  - Dry eye [Unknown]
  - Foreign body sensation in eyes [Unknown]
  - Night blindness [Unknown]

NARRATIVE: CASE EVENT DATE: 20210304
